FAERS Safety Report 10168571 (Version 1)
Quarter: 2014Q2

REPORT INFORMATION
  Report Type: Spontaneous
  Country: BE (occurrence: BE)
  Receive Date: 20140513
  Receipt Date: 20140513
  Transmission Date: 20141212
  Serious: Yes (Other)
  Sender: FDA-Public Use
  Company Number: BE-ROCHE-1395576

PATIENT
  Sex: Female

DRUGS (2)
  1. HERCEPTIN [Suspect]
     Indication: BREAST CANCER METASTATIC
     Route: 065
  2. XELODA [Suspect]
     Indication: BREAST CANCER METASTATIC
     Route: 065

REACTIONS (4)
  - Diarrhoea [Unknown]
  - Toxicity to various agents [Unknown]
  - Intestinal obstruction [Recovered/Resolved]
  - Enteritis [Unknown]
